FAERS Safety Report 8880500 (Version 1)
Quarter: 2012Q4

REPORT INFORMATION
  Report Type: 
  Country: GP (occurrence: FR)
  Receive Date: 20121031
  Receipt Date: 20121031
  Transmission Date: 20130627
  Serious: Yes (Other)
  Sender: FDA-Public Use
  Company Number: GP-ASTRAZENECA-2012SE81558

PATIENT
  Age: 25 Year
  Sex: Male

DRUGS (1)
  1. XEROQUEL [Suspect]
     Route: 048

REACTIONS (1)
  - Embolism [Unknown]
